FAERS Safety Report 16884682 (Version 2)
Quarter: 2019Q4

REPORT INFORMATION
  Report Type: Spontaneous
  Country: FR (occurrence: FR)
  Receive Date: 20191004
  Receipt Date: 20191029
  Transmission Date: 20200122
  Serious: Yes (Hospitalization)
  Sender: FDA-Public Use
  Company Number: FR-TEVA-2019-FR-1118625

PATIENT
  Sex: Male

DRUGS (7)
  1. GABITRIL [Suspect]
     Active Substance: TIAGABINE HYDROCHLORIDE
     Dosage: 3 DOSAGE FORMS DAILY;
     Route: 065
  2. GABITRIL [Suspect]
     Active Substance: TIAGABINE HYDROCHLORIDE
     Dosage: 1 DOSAGE FORMS DAILY;
     Route: 065
  3. LAMICTAL [Concomitant]
     Active Substance: LAMOTRIGINE
     Indication: EPILEPSY
     Dosage: 2 DOSAGE FORMS DAILY; 1 DF IN THE MORNING AND 1 DF IN THE EVENING
     Route: 065
  4. VALIUM [Concomitant]
     Active Substance: DIAZEPAM
     Indication: EPILEPSY
     Dosage: 45 DROPS IN CASE OF PROLONGED EPILEPTIC FIT
     Route: 065
  5. GABITRIL [Suspect]
     Active Substance: TIAGABINE HYDROCHLORIDE
     Dosage: 2 DOSAGE FORMS DAILY;
     Route: 065
  6. DEPAKINE CHRONO 500 MG [Concomitant]
     Active Substance: VALPROIC ACID
     Indication: EPILEPSY
     Dosage: 4 DOSAGE FORMS DAILY; 2 DF IN THE MORNING AND 2 DF IN THE EVENING
     Route: 065
  7. GABITRIL [Suspect]
     Active Substance: TIAGABINE HYDROCHLORIDE
     Dosage: 6 DOSAGE FORMS DAILY; 2 DOSAGE FORMS 3 TIMES DAILY SINCE APPROXIMATELY 10 YEAR
     Route: 065

REACTIONS (3)
  - Product supply issue [Recovered/Resolved]
  - Status epilepticus [Recovered/Resolved]
  - Loss of consciousness [Recovered/Resolved]

NARRATIVE: CASE EVENT DATE: 2019
